FAERS Safety Report 26062490 (Version 1)
Quarter: 2025Q4

REPORT INFORMATION
  Report Type: Spontaneous
  Country: US (occurrence: US)
  Receive Date: 20251119
  Receipt Date: 20251119
  Transmission Date: 20260118
  Serious: No
  Sender: ALVOGEN
  Company Number: US-ALVOGEN-2024095659

PATIENT
  Sex: Female

DRUGS (1)
  1. TERIPARATIDE [Suspect]
     Active Substance: TERIPARATIDE
     Indication: Osteoporosis
     Dosage: STRENGTH: 250 MCG/ML, 620MCG/2.48ML 1CT; THERAPY WAS ONGOING;?EXP: JUL-2025
     Route: 058
     Dates: start: 202306

REACTIONS (5)
  - Muscular weakness [Unknown]
  - Pain in extremity [Unknown]
  - Headache [Unknown]
  - Pain [Unknown]
  - Drug ineffective [Unknown]
